FAERS Safety Report 17463222 (Version 1)
Quarter: 2020Q1

REPORT INFORMATION
  Report Type: Spontaneous
  Country: US (occurrence: US)
  Receive Date: 20191107
  Receipt Date: 20191107
  Transmission Date: 20200409
  Serious: Yes (Life-Threatening, Hospitalization)
  Sender: FDA-Public Use
  Company Number: None

PATIENT
  Age: 24 Year
  Sex: Male

DRUGS (5)
  1. WAX, MARIJUANA [Suspect]
     Active Substance: CANNABIS SATIVA SUBSP. INDICA TOP
  2. THIRD GENERATION E-CIGARETTES OR VAPES WITH A REFILLABLE TANK WITH A [Suspect]
     Active Substance: DEVICE\NICOTINE
  3. LOST VAPE ORION [Suspect]
     Active Substance: DEVICE
  4. RED BRAND, WATERMELON FLAVORED 50MG STRENGTH^ (NICOTINE) [Suspect]
     Active Substance: NICOTINE\PROPYLENE GLYCOL
  5. THC VAPING [Suspect]
     Active Substance: .DELTA.8-TETRAHYDROCANNABINOL\DEVICE\HERBALS

REACTIONS (5)
  - Decreased appetite [None]
  - Dyspnoea [None]
  - Hyperhidrosis [None]
  - Vomiting [None]
  - Cough [None]
